FAERS Safety Report 7805848-9 (Version None)
Quarter: 2011Q4

REPORT INFORMATION
  Report Type: 
  Country: None (occurrence: None)
  Receive Date: 20111011
  Receipt Date: 20110929
  Transmission Date: 20120403
  Serious: No
  Sender: FDA-Public Use
  Company Number: US-BIOGENIDEC-2011BI038064

PATIENT
  Age: 45 Year
  Sex: Female

DRUGS (1)
  1. TYSABRI [Suspect]
     Indication: MULTIPLE SCLEROSIS
     Route: 042
     Dates: start: 20080520

REACTIONS (11)
  - PAIN IN EXTREMITY [None]
  - MULTIPLE SCLEROSIS RELAPSE [None]
  - DYSPNOEA [None]
  - PHARYNGEAL HYPOAESTHESIA [None]
  - TINNITUS [None]
  - ARTERIAL DISORDER [None]
  - GENERAL SYMPTOM [None]
  - INTRANASAL HYPOAESTHESIA [None]
  - NUCLEAR MAGNETIC RESONANCE IMAGING ABNORMAL [None]
  - HYPOAESTHESIA ORAL [None]
  - HYPOAESTHESIA [None]
